FAERS Safety Report 15685403 (Version 1)
Quarter: 2018Q4

REPORT INFORMATION
  Report Type: Spontaneous
  Country: US (occurrence: US)
  Receive Date: 20181204
  Receipt Date: 20181204
  Transmission Date: 20190205
  Serious: No
  Sender: FDA-Public Use
  Company Number: US-ADAAP-201800070

PATIENT
  Age: 65 Year
  Sex: Female
  Weight: 72.1 kg

DRUGS (2)
  1. LUTATHERA [Suspect]
     Active Substance: LUTETIUM OXODOTREOTIDE LU-177
     Indication: GASTROENTEROPANCREATIC NEUROENDOCRINE TUMOUR DISEASE
     Route: 042
     Dates: start: 20180412, end: 20180412
  2. AMINO ACIDS [Concomitant]
     Active Substance: AMINO ACIDS
     Indication: DRUG TOXICITY PROPHYLAXIS
     Route: 042

REACTIONS (2)
  - Pruritus [Recovered/Resolved]
  - Spider vein [Recovered/Resolved]

NARRATIVE: CASE EVENT DATE: 20180412
